FAERS Safety Report 9354076 (Version 1)
Quarter: 2013Q2

REPORT INFORMATION
  Report Type: Spontaneous
  Country: US (occurrence: None)
  Receive Date: 20130613
  Receipt Date: 20130613
  Transmission Date: 20140414
  Serious: Yes (Hospitalization)
  Sender: FDA-Public Use
  Company Number: ACET20130021

PATIENT
  Age: 37 Year
  Sex: Female

DRUGS (1)
  1. Q-PAP [Suspect]
     Indication: PRODUCT USED FOR UNKNOWN INDICATION
     Route: 048

REACTIONS (9)
  - Encephalopathy [None]
  - Coagulopathy [None]
  - Hyperbilirubinaemia [None]
  - Toxicity to various agents [None]
  - Renal failure acute [None]
  - International normalised ratio increased [None]
  - Clonus [None]
  - Extensor plantar response [None]
  - Posture abnormal [None]
